FAERS Safety Report 9423167 (Version 1)
Quarter: 2013Q3

REPORT INFORMATION
  Report Type: Spontaneous
  Country: US (occurrence: None)
  Receive Date: 20130724
  Receipt Date: 20130724
  Transmission Date: 20140515
  Serious: Yes (Hospitalization)
  Sender: FDA-Public Use
  Company Number: ALLO20130015

PATIENT
  Age: 31 Year
  Sex: Male

DRUGS (1)
  1. ALLOPURINOL [Suspect]
     Indication: HYPERURICAEMIA

REACTIONS (3)
  - Dermatitis exfoliative [None]
  - Hyperpyrexia [None]
  - Drug reaction with eosinophilia and systemic symptoms [None]
